FAERS Safety Report 4900736-X (Version None)
Quarter: 2006Q1

REPORT INFORMATION
  Report Type: 
  Country: None (occurrence: None)
  Receive Date: 20060113
  Receipt Date: 20050929
  Transmission Date: 20060701
  Serious: No
  Sender: FDA-Public Use
  Company Number: 2005SP002593

PATIENT
  Age: 63 Year
  Sex: Female

DRUGS (2)
  1. LUNESTA [Suspect]
     Dosage: 2 MG, HS, ORAL
     Route: 048
     Dates: start: 20050830, end: 20050101
  2. SYNTHROID [Concomitant]

REACTIONS (1)
  - HEADACHE [None]
